FAERS Safety Report 25487149 (Version 2)
Quarter: 2025Q3

REPORT INFORMATION
  Report Type: Spontaneous
  Country: JP (occurrence: JP)
  Receive Date: 20250627
  Receipt Date: 20250710
  Transmission Date: 20251020
  Serious: Yes (Other)
  Sender: SANOFI AVENTIS
  Company Number: JP-SA-2025SA179454

PATIENT

DRUGS (1)
  1. DUPIXENT [Suspect]
     Active Substance: DUPILUMAB
     Indication: Product used for unknown indication
     Route: 058

REACTIONS (2)
  - Hepatitis alcoholic [Unknown]
  - Liver function test increased [Unknown]
